FAERS Safety Report 10528604 (Version 1)
Quarter: 2014Q4

REPORT INFORMATION
  Report Type: Spontaneous
  Country: US (occurrence: None)
  Receive Date: 20141017
  Receipt Date: 20141017
  Transmission Date: 20150528
  Serious: Yes (Other)
  Sender: FDA-Public Use
  Company Number: None

PATIENT
  Age: 57 Year
  Sex: Female
  Weight: 73.94 kg

DRUGS (1)
  1. ASSURED PAIN RELIEF HOT MENTHOL [Suspect]
     Active Substance: CAPSAICIN\MENTHOL
     Indication: ARTHRITIS
     Dosage: APPLIED TO A SURFACE, USUALLY THE SKIN
     Dates: start: 20140817, end: 20140817

REACTIONS (3)
  - Application site pain [None]
  - Application site scar [None]
  - Application site burn [None]

NARRATIVE: CASE EVENT DATE: 20140817
